FAERS Safety Report 9619699 (Version 3)
Quarter: 2013Q4

REPORT INFORMATION
  Report Type: Spontaneous
  Country: JP (occurrence: JP)
  Receive Date: 20131014
  Receipt Date: 20131121
  Transmission Date: 20140711
  Serious: No
  Sender: FDA-Public Use
  Company Number: JP-B.I. PHARMACEUTICALS,INC./RIDGEFIELD-2013-BI-32329YA

PATIENT
  Age: 76 Year
  Sex: Male

DRUGS (4)
  1. HARNAL (TAMSULOSIN) ORODISPERSABLE CR [Suspect]
     Dosage: 0.2 MG
     Route: 048
  2. SAWACILLIN (AMOXICILLIN) [Suspect]
     Dosage: 750 MG
     Route: 048
     Dates: start: 20131001, end: 20131002
  3. SAWACILLIN (AMOXICILLIN) [Suspect]
  4. AVOLVE (DUTASTERIDE) [Suspect]
     Route: 048

REACTIONS (1)
  - Urinary retention [Recovered/Resolved]
